FAERS Safety Report 13701913 (Version 8)
Quarter: 2017Q4

REPORT INFORMATION
  Report Type: Spontaneous
  Country: BR (occurrence: BR)
  Receive Date: 20170629
  Receipt Date: 20171122
  Transmission Date: 20180320
  Serious: Yes (Hospitalization, Other)
  Sender: FDA-Public Use
  Company Number: BR-GLAXOSMITHKLINE-BR2016GSK126251

PATIENT
  Age: 65 Year
  Sex: Female
  Weight: 60 kg

DRUGS (5)
  1. BENLYSTA [Suspect]
     Active Substance: BELIMUMAB
     Indication: SYSTEMIC LUPUS ERYTHEMATOSUS
     Dosage: UNK
     Dates: start: 20150618
  2. BENLYSTA [Suspect]
     Active Substance: BELIMUMAB
     Dosage: UNK
     Dates: start: 20170511
  3. BENLYSTA [Suspect]
     Active Substance: BELIMUMAB
     Dosage: UNK
     Dates: start: 20170629
  4. BENLYSTA [Suspect]
     Active Substance: BELIMUMAB
     Dosage: UNK
     Dates: start: 20170927
  5. CITONEURIN (CYANOCOBALAMIN + PYRIDOXINE HYDROCHLORIDE + THIAMINE NITRA [Concomitant]
     Indication: PRODUCT USED FOR UNKNOWN INDICATION
     Dosage: UNK
     Route: 048

REACTIONS (21)
  - Drug ineffective [Unknown]
  - Pneumonia [Unknown]
  - Nervous system disorder [Recovered/Resolved]
  - Diabetes mellitus [Unknown]
  - Pain [Unknown]
  - Hypertension [Unknown]
  - Myocardial infarction [Unknown]
  - Infarction [Recovered/Resolved]
  - Neuritis [Unknown]
  - Lung disorder [Unknown]
  - Arterial occlusive disease [Unknown]
  - Cardiac disorder [Unknown]
  - Circumstance or information capable of leading to medication error [Unknown]
  - Decreased immune responsiveness [Unknown]
  - Herpes zoster [Unknown]
  - Pyrexia [Unknown]
  - Drug dose omission [Not Recovered/Not Resolved]
  - Inappropriate schedule of drug administration [Unknown]
  - Dyspnoea [Unknown]
  - Pain in extremity [Recovered/Resolved]
  - Systemic lupus erythematosus [Unknown]

NARRATIVE: CASE EVENT DATE: 20160920
